FAERS Safety Report 4285979-3 (Version None)
Quarter: 2004Q1

REPORT INFORMATION
  Report Type: 
  Country: None (occurrence: None)
  Receive Date: 20040205
  Receipt Date: 20040120
  Transmission Date: 20041129
  Serious: No
  Sender: FDA-Public Use
  Company Number: WAES 0401USA01536

PATIENT
  Age: 20 Year
  Sex: Male

DRUGS (1)
  1. PEPCID [Suspect]
     Route: 042
     Dates: start: 20030619, end: 20030622

REACTIONS (1)
  - BLOOD BILIRUBIN INCREASED [None]
